FAERS Safety Report 6801616-5 (Version None)
Quarter: 2010Q2

REPORT INFORMATION
  Report Type: 
  Country: None (occurrence: None)
  Receive Date: 20100629
  Receipt Date: 20100621
  Transmission Date: 20101027
  Serious: Yes (Other)
  Sender: FDA-Public Use
  Company Number: JP-MERCK-1006USA03828

PATIENT
  Age: 86 Year
  Sex: Male

DRUGS (2)
  1. PEPCID [Suspect]
     Route: 042
     Dates: start: 20100501
  2. PEPCID [Suspect]
     Route: 042
     Dates: start: 20100615

REACTIONS (2)
  - VENTRICULAR FIBRILLATION [None]
  - VENTRICULAR TACHYCARDIA [None]
